FAERS Safety Report 5164012-5 (Version None)
Quarter: 2006Q4

REPORT INFORMATION
  Report Type: 
  Country: None (occurrence: None)
  Receive Date: 20061204
  Receipt Date: 19970416
  Transmission Date: 20070319
  Serious: Yes (Hospitalization)
  Sender: FDA-Public Use
  Company Number: FR-BOEHRINGER INGELHEIM PHARMACEUTICALS, INC.-1997-FF-SP678

PATIENT
  Age: 76 Year
  Sex: Male
  Weight: 81 kg

DRUGS (10)
  1. MOBIC [Suspect]
     Route: 048
     Dates: start: 19970217, end: 19970225
  2. VOLTAREN [Suspect]
     Route: 048
     Dates: start: 19970115, end: 19970217
  3. TENSTATEN [Concomitant]
     Route: 048
  4. RENITEC [Concomitant]
     Route: 048
  5. BREXIN [Concomitant]
     Route: 048
     Dates: start: 19970225, end: 19970225
  6. AMLOR [Concomitant]
  7. MYOLASTAN [Concomitant]
  8. COTRAMYL [Concomitant]
  9. GELUPRANE [Concomitant]
  10. ZANTAC [Concomitant]

REACTIONS (2)
  - GALLBLADDER DISORDER [None]
  - PANCREATITIS HAEMORRHAGIC [None]
